FAERS Safety Report 7158651-X (Version None)
Quarter: 2010Q4

REPORT INFORMATION
  Report Type: 
  Country: None (occurrence: None)
  Receive Date: 20101214
  Receipt Date: 20100621
  Transmission Date: 20110411
  Serious: No
  Sender: FDA-Public Use
  Company Number: US-ASTRAZENECA-2010SE28928

PATIENT
  Sex: Female

DRUGS (3)
  1. CRESTOR [Suspect]
     Indication: BLOOD CHOLESTEROL INCREASED
     Route: 048
     Dates: start: 20090101
  2. CRESTOR [Suspect]
     Dosage: 20 MG, 1/2 TABLET DAILY
     Route: 048
     Dates: start: 20100614
  3. NEXIUM [Concomitant]

REACTIONS (5)
  - BACK PAIN [None]
  - CHEST DISCOMFORT [None]
  - MUSCULOSKELETAL PAIN [None]
  - NAUSEA [None]
  - NECK PAIN [None]
